FAERS Safety Report 4317444-9 (Version None)
Quarter: 2004Q1

REPORT INFORMATION
  Report Type: 
  Country: None (occurrence: None)
  Receive Date: 20040312
  Receipt Date: 20040302
  Transmission Date: 20041129
  Serious: Yes (Hospitalization, Other)
  Sender: FDA-Public Use
  Company Number: 2004008305

PATIENT
  Age: 75 Year
  Sex: Male

DRUGS (5)
  1. TIKOSYN [Suspect]
     Indication: ATRIAL FIBRILLATION
     Dosage: 1000 MCG (BID), ORAL
     Route: 048
     Dates: start: 20040201, end: 20040203
  2. LEVOTHROXINE SODIUM (LEVOTHYROXINE SODIUM) [Concomitant]
  3. WARFARIN SODIUM [Concomitant]
  4. LOSARTAN POTASSIUM (LOSARTAN POTASSIUM) [Concomitant]
  5. FUROSEMIDE [Concomitant]

REACTIONS (5)
  - BRADYCARDIA [None]
  - CARDIAC FIBRILLATION [None]
  - ELECTROCARDIOGRAM QT PROLONGED [None]
  - SINUS ARRHYTHMIA [None]
  - TORSADE DE POINTES [None]
